FAERS Safety Report 7026898-9 (Version None)
Quarter: 2010Q4

REPORT INFORMATION
  Report Type: 
  Country: None (occurrence: None)
  Receive Date: 20101004
  Receipt Date: 20100927
  Transmission Date: 20110411
  Serious: Yes (Life-Threatening, Hospitalization)
  Sender: FDA-Public Use
  Company Number: A0883624A

PATIENT
  Sex: Female

DRUGS (2)
  1. LAMICTAL [Suspect]
     Indication: BIPOLAR DISORDER
     Dosage: 100MG SEE DOSAGE TEXT
     Route: 048
     Dates: start: 20090915
  2. AMITRIPTYLINE [Suspect]
     Indication: PRODUCT USED FOR UNKNOWN INDICATION
     Route: 048

REACTIONS (7)
  - COMA [None]
  - FALL [None]
  - HYPERNATRAEMIA [None]
  - INTENTIONAL OVERDOSE [None]
  - NERVOUS SYSTEM DISORDER [None]
  - RESPIRATORY DISTRESS [None]
  - SUICIDE ATTEMPT [None]
